FAERS Safety Report 4593836-8 (Version None)
Quarter: 2005Q1

REPORT INFORMATION
  Report Type: 
  Country: None (occurrence: None)
  Receive Date: 20050301
  Receipt Date: 20040927
  Transmission Date: 20050727
  Serious: Yes (Other)
  Sender: FDA-Public Use
  Company Number: PHEH2004US10373

PATIENT
  Age: 62 Year
  Sex: Female
  Weight: 54 kg

DRUGS (4)
  1. DURAGESIC-100 [Concomitant]
     Indication: ORAL PAIN
     Dosage: 0.25 MG, Q72H
     Route: 062
     Dates: start: 20041012
  2. RADIATION [Suspect]
     Indication: NASOPHARYNGEAL CANCER
  3. GLEEVEC [Suspect]
     Indication: CHRONIC MYELOID LEUKAEMIA
     Dosage: 400 MG, QD
     Route: 048
     Dates: start: 20041201
  4. GLEEVEC [Suspect]
     Dosage: 400 MG, QD
     Route: 048
     Dates: start: 20010601, end: 20040929

REACTIONS (5)
  - ODYNOPHAGIA [None]
  - ORAL MUCOSAL BLISTERING [None]
  - PHARYNGEAL FISTULA [None]
  - SQUAMOUS CELL CARCINOMA [None]
  - STOMATITIS [None]
